FAERS Safety Report 21969736 (Version 2)
Quarter: 2023Q1

REPORT INFORMATION
  Report Type: Spontaneous
  Country: MX (occurrence: MX)
  Receive Date: 20230208
  Receipt Date: 20230224
  Transmission Date: 20230418
  Serious: Yes (Hospitalization, Other)
  Sender: FDA-Public Use
  Company Number: MX-SA-SAC20230202000445

PATIENT

DRUGS (2)
  1. LARONIDASE [Suspect]
     Active Substance: LARONIDASE
     Indication: Product used for unknown indication
     Dosage: 3 IU, QW
     Route: 042
  2. LARONIDASE [Suspect]
     Active Substance: LARONIDASE
     Dosage: 3 DF, QW
     Route: 042

REACTIONS (7)
  - Oropharyngeal discomfort [Recovering/Resolving]
  - Pharyngeal lesion [Recovering/Resolving]
  - Oral disorder [Recovering/Resolving]
  - Pulmonary congestion [Recovering/Resolving]
  - Cough [Recovering/Resolving]
  - Influenza like illness [Recovering/Resolving]
  - Haemoptysis [Recovering/Resolving]

NARRATIVE: CASE EVENT DATE: 20230130
